FAERS Safety Report 18326388 (Version 1)
Quarter: 2020Q3

REPORT INFORMATION
  Report Type: Spontaneous
  Country: DE (occurrence: DE)
  Receive Date: 20200929
  Receipt Date: 20200929
  Transmission Date: 20201103
  Serious: Yes (Other)
  Sender: FDA-Public Use
  Company Number: DE-BAYER-2020-204550

PATIENT
  Age: 62 Year
  Sex: Female

DRUGS (6)
  1. SORAFENIB (RAF KINASE INHIBITOR) [Suspect]
     Active Substance: SORAFENIB
     Indication: HEPATOCELLULAR CARCINOMA
     Dosage: DAILY DOSE 400 MG
  2. CABOZANTINIB [Concomitant]
     Active Substance: CABOZANTINIB
     Dosage: DAILY DOSE 40MG
  3. PEMBROLIZUMAB. [Concomitant]
     Active Substance: PEMBROLIZUMAB
     Dosage: 200 MG, Q3WK
     Route: 042
  4. SORAFENIB (RAF KINASE INHIBITOR) [Suspect]
     Active Substance: SORAFENIB
     Indication: HEPATOCELLULAR CARCINOMA
     Dosage: DAILY DOSE 600 MG
  5. CABOZANTINIB [Concomitant]
     Active Substance: CABOZANTINIB
     Dosage: DAILY DOSE 60 MG
  6. LENVATINIB [Concomitant]
     Active Substance: LENVATINIB
     Dosage: 12 MG

REACTIONS (2)
  - Hepatocellular carcinoma [None]
  - Drug ineffective [None]
